FAERS Safety Report 13528661 (Version 1)
Quarter: 2017Q2

REPORT INFORMATION
  Report Type: Spontaneous
  Country: US (occurrence: US)
  Receive Date: 20170509
  Receipt Date: 20170509
  Transmission Date: 20170830
  Serious: Yes (Other)
  Sender: FDA-Public Use
  Company Number: US-PFIZER INC-2017201620

PATIENT
  Sex: Female

DRUGS (1)
  1. XELJANZ [Suspect]
     Active Substance: TOFACITINIB CITRATE
     Dosage: 5 MG

REACTIONS (9)
  - Joint swelling [Unknown]
  - Rash [Unknown]
  - Headache [Unknown]
  - Joint crepitation [Unknown]
  - Abdominal pain [Unknown]
  - Atrial fibrillation [Unknown]
  - Fatigue [Unknown]
  - Arthralgia [Recovering/Resolving]
  - Joint range of motion decreased [Unknown]
